FAERS Safety Report 23064030 (Version 1)
Quarter: 2023Q4

REPORT INFORMATION
  Report Type: Report from Study
  Country: TW (occurrence: TW)
  Receive Date: 20231013
  Receipt Date: 20231013
  Transmission Date: 20240110
  Serious: Yes (Hospitalization)
  Sender: FDA-Public Use
  Company Number: TW-ALNYLAM PHARMACEUTICALS, INC.-ALN-2023-005272

PATIENT

DRUGS (2)
  1. ONPATTRO [Suspect]
     Active Substance: PATISIRAN SODIUM
     Indication: Hereditary neuropathic amyloidosis
     Dosage: 12.9 UNIT
     Route: 042
     Dates: start: 20230804
  2. ONPATTRO [Suspect]
     Active Substance: PATISIRAN SODIUM
     Dosage: UNK
     Route: 065
     Dates: start: 20231004

REACTIONS (4)
  - White blood cell count increased [Unknown]
  - C-reactive protein increased [Unknown]
  - Joint swelling [Unknown]
  - Fall [Unknown]
